FAERS Safety Report 19319284 (Version 1)
Quarter: 2021Q2

REPORT INFORMATION
  Report Type: Spontaneous
  Country: CN (occurrence: CN)
  Receive Date: 20210527
  Receipt Date: 20210527
  Transmission Date: 20210717
  Serious: Yes (Other)
  Sender: FDA-Public Use
  Company Number: CN-PFIZER INC-2021577178

PATIENT
  Age: 4 Month
  Sex: Female

DRUGS (1)
  1. CELECOXIB. [Suspect]
     Active Substance: CELECOXIB
     Indication: ANALGESIC THERAPY
     Dosage: 1 DF, ALTERNATE DAY
     Route: 048
     Dates: start: 20210227, end: 20210301

REACTIONS (2)
  - Off label use [Unknown]
  - Infantile vomiting [Recovering/Resolving]

NARRATIVE: CASE EVENT DATE: 20210301
